FAERS Safety Report 16492615 (Version 1)
Quarter: 2019Q2

REPORT INFORMATION
  Report Type: Report from Study
  Country: None (occurrence: US)
  Receive Date: 20190628
  Receipt Date: 20190628
  Transmission Date: 20190711
  Serious: Yes (Other)
  Sender: FDA-Public Use
  Company Number: US-ABBVIE-19K-163-2831787-00

PATIENT
  Sex: Female

DRUGS (1)
  1. HUMIRA [Suspect]
     Active Substance: ADALIMUMAB
     Indication: ANKYLOSING SPONDYLITIS
     Dosage: CITRATE FREE
     Route: 058

REACTIONS (7)
  - Surgery [Not Recovered/Not Resolved]
  - Uterine operation [Unknown]
  - Hernia repair [Unknown]
  - Hysterectomy [Unknown]
  - Prolapse [Unknown]
  - Post procedural infection [Not Recovered/Not Resolved]
  - Appendicectomy [Unknown]
